FAERS Safety Report 9346708 (Version 2)
Quarter: 2013Q3

REPORT INFORMATION
  Report Type: Spontaneous
  Country: US (occurrence: US)
  Receive Date: 20130613
  Receipt Date: 20130708
  Transmission Date: 20140515
  Serious: No
  Sender: FDA-Public Use
  Company Number: US-JNJFOC-20130600259

PATIENT
  Age: 56 Year
  Sex: Female
  Weight: 70.31 kg

DRUGS (17)
  1. DURAGESIC [Suspect]
     Indication: BACK DISORDER
     Route: 062
  2. DURAGESIC [Suspect]
     Indication: BACK DISORDER
     Dosage: AT 10 AM
     Route: 062
     Dates: start: 20130304
  3. DURAGESIC [Suspect]
     Indication: FIBROMYALGIA
     Dosage: AT 10 AM
     Route: 062
     Dates: start: 20130304
  4. DURAGESIC [Suspect]
     Indication: FIBROMYALGIA
     Route: 062
  5. DURAGESIC [Suspect]
     Indication: PAIN
     Dosage: AT 10 AM
     Route: 062
     Dates: start: 20130304
  6. DURAGESIC [Suspect]
     Indication: PAIN
     Route: 062
  7. UNSPECIFIED FENTANYL TRANSDERMAL SYSTEM [Suspect]
     Indication: PRODUCT USED FOR UNKNOWN INDICATION
     Route: 062
  8. OXYCODONE [Concomitant]
     Indication: BREAKTHROUGH PAIN
     Route: 048
     Dates: start: 201301
  9. SOMA [Concomitant]
     Indication: MYALGIA
     Route: 048
  10. WELLBUTRIN [Concomitant]
     Indication: DEPRESSION
     Route: 048
     Dates: start: 2012
  11. PAXIL [Concomitant]
     Indication: DEPRESSION
     Route: 048
     Dates: start: 2013
  12. LIPITOR [Concomitant]
     Indication: BLOOD CHOLESTEROL
     Route: 048
     Dates: start: 2013
  13. DETROL LA [Concomitant]
     Indication: URINARY INCONTINENCE
     Route: 048
  14. CARBATROL [Concomitant]
     Indication: CONVULSION
     Route: 048
  15. ESTRADIOL [Concomitant]
     Indication: MENOPAUSE
     Route: 062
  16. PROGESTERONE [Concomitant]
     Indication: MENOPAUSE
     Route: 062
  17. VALIUM [Concomitant]
     Indication: PRODUCT USED FOR UNKNOWN INDICATION
     Route: 065

REACTIONS (3)
  - Drug effect decreased [Not Recovered/Not Resolved]
  - Panic attack [Not Recovered/Not Resolved]
  - Drug withdrawal syndrome [Recovered/Resolved]
